FAERS Safety Report 20712110 (Version 1)
Quarter: 2022Q2

REPORT INFORMATION
  Report Type: Spontaneous
  Country: LK (occurrence: LK)
  Receive Date: 20220414
  Receipt Date: 20220414
  Transmission Date: 20220721
  Serious: Yes (Hospitalization, Other)
  Sender: FDA-Public Use
  Company Number: LK-PRINSTON PHARMACEUTICAL INC.-2022PRN00120

PATIENT
  Age: 16 Year
  Sex: Female

DRUGS (2)
  1. RISPERIDONE [Suspect]
     Active Substance: RISPERIDONE
     Indication: Depressive symptom
     Dosage: 1 MG, 1X/DAY
     Route: 065
  2. RISPERIDONE [Suspect]
     Active Substance: RISPERIDONE
     Indication: Euphoric mood

REACTIONS (2)
  - Brain oedema [Unknown]
  - Neuroleptic malignant syndrome [Recovered/Resolved]
